FAERS Safety Report 9069579 (Version 2)
Quarter: 2013Q1

REPORT INFORMATION
  Report Type: Spontaneous
  Country: CH (occurrence: CH)
  Receive Date: 20130215
  Receipt Date: 20130222
  Transmission Date: 20140127
  Serious: Yes (Other)
  Sender: FDA-Public Use
  Company Number: PHHY2013CH014210

PATIENT
  Sex: 0

DRUGS (7)
  1. RASILEZ [Suspect]
  2. LISINOPRIL [Interacting]
  3. ATACAND PLUS [Interacting]
  4. ASPIRIN CARDIO [Concomitant]
  5. METFIN [Concomitant]
  6. VENLAFAXIN [Concomitant]
  7. NITRODUR [Concomitant]

REACTIONS (4)
  - Diabetes mellitus [Unknown]
  - Blood pressure increased [Recovered/Resolved]
  - General physical health deterioration [Unknown]
  - Drug interaction [Unknown]
